FAERS Safety Report 21021482 (Version 1)
Quarter: 2022Q2

REPORT INFORMATION
  Report Type: Spontaneous
  Country: US (occurrence: None)
  Receive Date: 20220628
  Receipt Date: 20220628
  Transmission Date: 20220721
  Serious: Yes (Hospitalization)
  Sender: FDA-Public Use
  Company Number: None

PATIENT
  Sex: Female

DRUGS (9)
  1. SODIUM CHLORIDE [Suspect]
     Active Substance: SODIUM CHLORIDE
     Indication: Chronic respiratory failure
     Dosage: FREQUENCY : EVERY 4 HOURS;?
     Route: 055
     Dates: start: 20220408
  2. ALBUTEROL SULFATE [Concomitant]
     Active Substance: ALBUTEROL SULFATE
  3. BUDESONIDE [Concomitant]
     Active Substance: BUDESONIDE
  4. CHILDRENS LORATADINE [Concomitant]
     Active Substance: LORATADINE
  5. CUVPOSA [Concomitant]
     Active Substance: GLYCOPYRROLATE
  6. FAMOTIDINE [Concomitant]
     Active Substance: FAMOTIDINE
  7. IPRATROPIUM BROMIDE [Concomitant]
     Active Substance: IPRATROPIUM BROMIDE
  8. POLYETHYLENE GLYCOL 3350 [Concomitant]
     Active Substance: POLYETHYLENE GLYCOL 3350
  9. STERILE WATER IRRIGATION [Concomitant]

REACTIONS (1)
  - Hospitalisation [None]
